FAERS Safety Report 12187699 (Version 1)
Quarter: 2016Q1

REPORT INFORMATION
  Report Type: Spontaneous
  Country: US (occurrence: US)
  Receive Date: 20160317
  Receipt Date: 20160317
  Transmission Date: 20160526
  Serious: No
  Sender: FDA-Public Use
  Company Number: US-PERRIGO-15US008697

PATIENT
  Sex: Male

DRUGS (1)
  1. NICOTINE POLACRILEX [Suspect]
     Active Substance: NICOTINE
     Indication: TOBACCO USER
     Dosage: HALF LOZENGE, UNKNOWN
     Route: 002
     Dates: start: 2015

REACTIONS (4)
  - Off label use [Unknown]
  - Wrong technique in product usage process [Unknown]
  - Pigmentation disorder [Unknown]
  - Oral discomfort [Unknown]

NARRATIVE: CASE EVENT DATE: 2015
